FAERS Safety Report 4294739-9 (Version None)
Quarter: 2004Q1

REPORT INFORMATION
  Report Type: 
  Country: None (occurrence: None)
  Receive Date: 20040211
  Receipt Date: 20040123
  Transmission Date: 20041129
  Serious: Yes (Hospitalization)
  Sender: FDA-Public Use
  Company Number: DE_040112847

PATIENT
  Age: 79 Year
  Sex: Male
  Weight: 61 kg

DRUGS (6)
  1. GEMZAR [Suspect]
     Indication: NON-SMALL CELL LUNG CANCER
     Route: 042
     Dates: start: 20031126
  2. ACETYLCYSTEINE [Concomitant]
  3. ASS [Concomitant]
  4. VOLTAREN [Concomitant]
  5. PANTOZOL (PANTOPRAZOLE SODIUM) [Concomitant]
  6. PROSTAGUTT [Concomitant]

REACTIONS (1)
  - LOBAR PNEUMONIA [None]
